FAERS Safety Report 24892224 (Version 2)
Quarter: 2025Q1

REPORT INFORMATION
  Report Type: Report from Study
  Country: CA (occurrence: CA)
  Receive Date: 20250128
  Receipt Date: 20250220
  Transmission Date: 20250408
  Serious: Yes (Hospitalization)
  Sender: ROCHE
  Company Number: CA-ROCHE-3531015

PATIENT
  Age: 47 Year
  Sex: Male

DRUGS (1)
  1. OCREVUS [Suspect]
     Active Substance: OCRELIZUMAB
     Indication: Relapsing-remitting multiple sclerosis
     Dosage: AT DAY 0 AND 14, THEN 600 MG EVERY 6 MONTH.
     Route: 040
     Dates: start: 20200303

REACTIONS (3)
  - Dizziness [Not Recovered/Not Resolved]
  - Tooth disorder [Unknown]
  - Fall [Unknown]

NARRATIVE: CASE EVENT DATE: 20240120
